FAERS Safety Report 6599198-9 (Version None)
Quarter: 2010Q1

REPORT INFORMATION
  Report Type: 
  Country: None (occurrence: None)
  Receive Date: 20100217
  Receipt Date: 20100127
  Transmission Date: 20100710
  Serious: Yes (Other)
  Sender: FDA-Public Use
  Company Number: 2009AC000368

PATIENT
  Age: 67 Year
  Sex: Female

DRUGS (17)
  1. DIGOXIN [Suspect]
     Dosage: 250 MCG;PO
     Route: 048
     Dates: start: 20071123, end: 20071203
  2. DIGOXIN [Suspect]
     Dosage: 125 MCG
     Dates: start: 20071205
  3. DIGOXIN [Suspect]
     Dosage: .25 MG;QD;PO
     Route: 048
     Dates: start: 20020101, end: 20050401
  4. DIGOXIN [Suspect]
     Dosage: .125 MG;QD;PO
     Route: 048
     Dates: start: 20050401, end: 20080401
  5. CELEBREX [Concomitant]
  6. ATENOLOL [Concomitant]
  7. TOPROL-XL [Concomitant]
  8. METOPROLOL TARTRATE [Concomitant]
  9. DIAZEPAM TAB [Concomitant]
  10. TRIAMTERENE [Concomitant]
  11. GENTAMICIN [Concomitant]
  12. PREMARIN [Concomitant]
  13. DILTIAZEM HCL [Concomitant]
  14. MEDROXYPROGESTERONE [Concomitant]
  15. HYDROCHLOROTHIAZIDE [Concomitant]
  16. ARIMIDEX [Concomitant]
  17. CARTIA XT [Concomitant]

REACTIONS (14)
  - BRADYCARDIA [None]
  - CARDIOACTIVE DRUG LEVEL INCREASED [None]
  - CHEST DISCOMFORT [None]
  - DIZZINESS [None]
  - FATIGUE [None]
  - ILL-DEFINED DISORDER [None]
  - INJURY [None]
  - MITRAL VALVE INCOMPETENCE [None]
  - NAUSEA [None]
  - PALPITATIONS [None]
  - PRESYNCOPE [None]
  - SUPRAVENTRICULAR TACHYCARDIA [None]
  - SYNCOPE [None]
  - WEIGHT DECREASED [None]
